FAERS Safety Report 23272774 (Version 1)
Quarter: 2023Q4

REPORT INFORMATION
  Report Type: Spontaneous
  Country: US (occurrence: None)
  Receive Date: 20231207
  Receipt Date: 20231207
  Transmission Date: 20240109
  Serious: No
  Sender: FDA-Public Use
  Company Number: None

PATIENT
  Sex: Male

DRUGS (1)
  1. HUMIRA [Suspect]
     Active Substance: ADALIMUMAB
     Indication: Colitis ulcerative
     Dosage: OTHER QUANTITY : 40MG/0.4ML;?FREQUENCY : EVERY OTHER WEEK;?
     Dates: start: 202308

REACTIONS (2)
  - Drug ineffective [None]
  - Therapy cessation [None]
